FAERS Safety Report 10233634 (Version 2)
Quarter: 2014Q2

REPORT INFORMATION
  Report Type: Spontaneous
  Country: FR (occurrence: FR)
  Receive Date: 20140612
  Receipt Date: 20140630
  Transmission Date: 20141212
  Serious: Yes (Life-Threatening, Hospitalization, Other)
  Sender: FDA-Public Use
  Company Number: FR-JNJFOC-20140604175

PATIENT
  Age: 70 Year
  Sex: Male

DRUGS (14)
  1. REMICADE [Suspect]
     Indication: SYMPATHETIC OPHTHALMIA
     Route: 042
     Dates: start: 20130208
  2. REMICADE [Suspect]
     Indication: SYMPATHETIC OPHTHALMIA
     Dosage: 4TH INFLIXIMAB INFUSION
     Route: 042
     Dates: start: 20140502, end: 2014
  3. PREDNISOLONE [Concomitant]
     Route: 065
  4. PREDNISONE [Concomitant]
     Route: 065
  5. CLOPIDOGREL [Concomitant]
     Route: 065
  6. DOLIPRANE [Concomitant]
     Route: 065
  7. CACIT NOS [Concomitant]
     Route: 065
  8. DEXAFREE [Concomitant]
     Route: 065
  9. ATARAX [Concomitant]
     Route: 065
  10. VALSARTAN [Concomitant]
     Route: 065
  11. SPIRIVA [Concomitant]
     Route: 065
  12. DIFFU K [Concomitant]
     Route: 065
  13. ONBREZ [Concomitant]
     Route: 065
  14. CORTICOSTEROIDS [Concomitant]
     Route: 065

REACTIONS (5)
  - Lung neoplasm malignant [Not Recovered/Not Resolved]
  - Neoplasm prostate [Unknown]
  - Metastases to spine [Unknown]
  - Drug ineffective [Unknown]
  - Off label use [Recovered/Resolved]
